FAERS Safety Report 5314499-X (Version None)
Quarter: 2007Q2

REPORT INFORMATION
  Report Type: 
  Country: None (occurrence: None)
  Receive Date: 20070427
  Receipt Date: 20070409
  Transmission Date: 20071010
  Serious: Yes (Hospitalization)
  Sender: FDA-Public Use
  Company Number: 012812

PATIENT
  Sex: Female

DRUGS (1)
  1. PRIALT [Suspect]
     Indication: PAIN
     Dosage: 0.05 UG, ONCE/HOUR, INTRATHECAL
     Route: 037
     Dates: start: 20060801

REACTIONS (1)
  - POST PROCEDURAL INFECTION [None]
